FAERS Safety Report 6289270-5 (Version None)
Quarter: 2009Q3

REPORT INFORMATION
  Report Type: 
  Country: None (occurrence: None)
  Receive Date: 20090730
  Receipt Date: 20070801
  Transmission Date: 20100115
  Serious: Yes (Other)
  Sender: FDA-Public Use
  Company Number: US-ASTRAZENECA-2007UW05994

PATIENT
  Age: 510 Month
  Sex: Female
  Weight: 105.7 kg

DRUGS (22)
  1. SEROQUEL [Suspect]
     Indication: DEPRESSION
     Dosage: 50 MG-150 MG
     Route: 048
     Dates: start: 20020430, end: 20040628
  2. SEROQUEL [Suspect]
     Indication: SLEEP DISORDER
     Dosage: 50 MG-150 MG
     Route: 048
     Dates: start: 20020430, end: 20040628
  3. SEROQUEL [Suspect]
     Indication: INSOMNIA
     Dosage: 50 MG-150 MG
     Route: 048
     Dates: start: 20020430, end: 20040628
  4. SEROQUEL [Suspect]
     Route: 048
     Dates: start: 20020601, end: 20060401
  5. SEROQUEL [Suspect]
     Route: 048
     Dates: start: 20020601, end: 20060401
  6. SEROQUEL [Suspect]
     Route: 048
     Dates: start: 20020601, end: 20060401
  7. SEROQUEL [Suspect]
     Route: 048
     Dates: start: 20060117
  8. SEROQUEL [Suspect]
     Route: 048
     Dates: start: 20060117
  9. SEROQUEL [Suspect]
     Route: 048
     Dates: start: 20060117
  10. ZYPREXA [Concomitant]
     Dosage: 2.5 MG-10 MG
     Route: 048
     Dates: start: 20020430
  11. PROVIGIL [Concomitant]
     Dosage: 100 MG-400 MG
     Route: 048
     Dates: start: 20010507
  12. ALPRAZOLAM [Concomitant]
     Route: 048
     Dates: start: 20020925
  13. LIPITOR [Concomitant]
     Route: 048
     Dates: start: 20030327
  14. ACTOS [Concomitant]
     Route: 048
     Dates: start: 20030801
  15. SKELAXIN [Concomitant]
     Indication: MUSCLE STRAIN
     Route: 048
     Dates: start: 20020925, end: 20030101
  16. TYLENOL (CAPLET) [Concomitant]
     Indication: OROPHARYNGEAL PAIN
     Dosage: 1 G FOUR TIMES DAILY, 1 G TWO TIMES DAILY
     Route: 048
     Dates: start: 19940325
  17. TYLENOL (CAPLET) [Concomitant]
     Indication: DISCOMFORT
     Dosage: 1 G FOUR TIMES DAILY, 1 G TWO TIMES DAILY
     Route: 048
     Dates: start: 19940325
  18. LOTENSIN [Concomitant]
     Dosage: 10 MG-40 MG
     Route: 048
     Dates: start: 20030327
  19. METFORMIN [Concomitant]
     Dosage: 1000 MG MORNING-500 MG NOON-1000 MG NIGHT
     Route: 048
     Dates: start: 20031126
  20. ALBUTEROL [Concomitant]
     Dosage: 2 PUFFS FOUR TIMES DAILY
     Route: 048
     Dates: start: 20030715
  21. GLUCOTROL XL [Concomitant]
     Route: 048
     Dates: start: 20031126
  22. PROVENTIL-HFA [Concomitant]
     Dosage: 2 PUFFS FOUR TIMES A DAY
     Route: 048
     Dates: start: 19921111

REACTIONS (4)
  - DIABETES MELLITUS INADEQUATE CONTROL [None]
  - DIABETIC NEPHROPATHY [None]
  - ORTHOSTATIC HYPOTENSION [None]
  - TYPE 2 DIABETES MELLITUS [None]
